FAERS Safety Report 5109008-4 (Version None)
Quarter: 2006Q3

REPORT INFORMATION
  Report Type: 
  Country: None (occurrence: None)
  Receive Date: 20060918
  Receipt Date: 20060831
  Transmission Date: 20061208
  Serious: Yes (Other)
  Sender: FDA-Public Use
  Company Number: ENTC2006-0247

PATIENT
  Age: 70 Year
  Sex: Male

DRUGS (1)
  1. STALEVO 100 [Suspect]
     Dosage: 150MG  5 TIMES A DAY
     Dates: start: 20060601

REACTIONS (4)
  - HALLUCINATION [None]
  - INCORRECT DOSE ADMINISTERED [None]
  - PARANOIA [None]
  - PSYCHOTIC DISORDER [None]
